FAERS Safety Report 15282433 (Version 1)
Quarter: 2018Q3

REPORT INFORMATION
  Report Type: Spontaneous
  Country: US (occurrence: US)
  Receive Date: 20180816
  Receipt Date: 20180816
  Transmission Date: 20181010
  Serious: Yes (Hospitalization, Other)
  Sender: FDA-Public Use
  Company Number: US-AUROBINDO-AUR-APL-2018-040772

PATIENT
  Age: 48 Year
  Sex: Male

DRUGS (2)
  1. PREDNISONE. [Suspect]
     Active Substance: PREDNISONE
     Indication: CARDIAC SARCOIDOSIS
     Dosage: 30 MILLIGRAM
     Route: 065
  2. MYCOPHENOLATE MOFETIL. [Suspect]
     Active Substance: MYCOPHENOLATE MOFETIL
     Indication: CARDIAC SARCOIDOSIS
     Dosage: UNK
     Route: 065

REACTIONS (4)
  - Propionibacterium infection [Recovering/Resolving]
  - Pericarditis infective [Recovered/Resolved]
  - Ischaemia [Recovered/Resolved]
  - Cardiac tamponade [Recovered/Resolved]
